FAERS Safety Report 17334670 (Version 1)
Quarter: 2020Q1

REPORT INFORMATION
  Report Type: Spontaneous
  Country: US (occurrence: US)
  Receive Date: 20200128
  Receipt Date: 20200128
  Transmission Date: 20200409
  Serious: Yes (Death, Other)
  Sender: FDA-Public Use
  Company Number: US-CHEPLA-C20200439_04

PATIENT
  Age: 63 Year
  Sex: Female

DRUGS (5)
  1. DA-EPOCH-R [Suspect]
     Active Substance: CYCLOPHOSPHAMIDE\DOXORUBICIN\ETOPOSIDE\PREDNISONE\RITUXIMAB\VINCRISTINE
     Indication: B-CELL LYMPHOMA
  2. R-ICE THERAPY (RITUXIMAB) [Suspect]
     Active Substance: RITUXIMAB
     Indication: B-CELL LYMPHOMA
  3. PEMBROLIZUMAB. [Suspect]
     Active Substance: PEMBROLIZUMAB
     Indication: B-CELL LYMPHOMA
  4. AXICABTAGEN-CILOLEUCEL [Suspect]
     Active Substance: AXICABTAGENE CILOLEUCEL
     Indication: B-CELL LYMPHOMA
  5. R-ICE THERAPY (CARBOPLATIN\ETOPOSIDE\IFOSFAMIDE) [Suspect]
     Active Substance: CARBOPLATIN\ETOPOSIDE\IFOSFAMIDE

REACTIONS (2)
  - Death [Fatal]
  - Malignant neoplasm progression [Unknown]
